FAERS Safety Report 24579935 (Version 1)
Quarter: 2024Q4

REPORT INFORMATION
  Report Type: Spontaneous
  Country: US (occurrence: None)
  Receive Date: 20241104
  Receipt Date: 20241104
  Transmission Date: 20250114
  Serious: Yes (Death)
  Sender: Public
  Company Number: None

PATIENT
  Age: 85 Year
  Sex: Male
  Weight: 76 kg

DRUGS (1)
  1. METHYLPREDNISOLONE ACETATE [Suspect]
     Active Substance: METHYLPREDNISOLONE ACETATE
     Indication: Upper respiratory tract infection
     Dates: start: 20240718, end: 20240718

REACTIONS (4)
  - Agitation [None]
  - Confusional state [None]
  - Delirium [None]
  - Substance-induced psychotic disorder [None]

NARRATIVE: CASE EVENT DATE: 20240718
